FAERS Safety Report 15560753 (Version 1)
Quarter: 2018Q4

REPORT INFORMATION
  Report Type: Spontaneous
  Country: US (occurrence: US)
  Receive Date: 20181029
  Receipt Date: 20181029
  Transmission Date: 20190205
  Serious: Yes (Hospitalization)
  Sender: FDA-Public Use
  Company Number: None

PATIENT
  Age: 67 Year
  Sex: Male
  Weight: 79.65 kg

DRUGS (12)
  1. ATORVASTATIN [Concomitant]
     Active Substance: ATORVASTATIN
  2. METOPROLOL. [Concomitant]
     Active Substance: METOPROLOL
  3. CEFEPIME ANTIBIOTIC [Suspect]
     Active Substance: CEFEPIME HYDROCHLORIDE
     Indication: PERITONITIS
     Dosage: ?          QUANTITY:1 INJECTION(S);?
     Route: 058
     Dates: start: 20181026, end: 20181027
  4. ALLOPURINOL. [Concomitant]
     Active Substance: ALLOPURINOL
  5. CEFTAZIDIME. [Concomitant]
     Active Substance: CEFTAZIDIME
  6. BUPROPION. [Concomitant]
     Active Substance: BUPROPION
  7. HYDRALAZINE [Concomitant]
     Active Substance: HYDRALAZINE HYDROCHLORIDE
  8. OMEPRAZOLE. [Concomitant]
     Active Substance: OMEPRAZOLE
  9. SEVELAMER [Concomitant]
     Active Substance: SEVELAMER
  10. SENSIPAR [Concomitant]
     Active Substance: CINACALCET HYDROCHLORIDE
  11. VITAMIN D [Concomitant]
     Active Substance: CHOLECALCIFEROL
  12. TYLENOL [Concomitant]
     Active Substance: ACETAMINOPHEN

REACTIONS (1)
  - Hallucination [None]

NARRATIVE: CASE EVENT DATE: 20181026
